FAERS Safety Report 9865093 (Version 1)
Quarter: 2014Q1

REPORT INFORMATION
  Report Type: Other
  Country: US (occurrence: US)
  Receive Date: 20140203
  Receipt Date: 20140203
  Transmission Date: 20141002
  Serious: Yes (Other)
  Sender: FDA-Public Use
  Company Number: US-US-EMD SERONO, INC.-7266194

PATIENT
  Age: 38 Year
  Sex: Female

DRUGS (3)
  1. FOLLITROPIN ALFA [Suspect]
     Indication: PRODUCT USED FOR UNKNOWN INDICATION
  2. GNRH (GONADOTROPHIN RELEASE HORMONE) [Suspect]
     Indication: PRODUCT USED FOR UNKNOWN INDICATION
  3. CHORIOGONADOTROPIN ALFA [Suspect]
     Indication: PRODUCT USED FOR UNKNOWN INDICATION

REACTIONS (2)
  - Posterior reversible encephalopathy syndrome [Recovering/Resolving]
  - Ovarian hyperstimulation syndrome [Recovering/Resolving]
